FAERS Safety Report 6158347-7 (Version None)
Quarter: 2009Q2

REPORT INFORMATION
  Report Type: 
  Country: None (occurrence: None)
  Receive Date: 20090414
  Receipt Date: 20090414
  Transmission Date: 20091009
  Serious: Yes (Hospitalization)
  Sender: FDA-Public Use
  Company Number: None

PATIENT
  Sex: Female

DRUGS (7)
  1. LENALIDOMIDE [Suspect]
     Indication: HYPERGAMMAGLOBULINAEMIA BENIGN MONOCLONAL
     Dosage: 15 MG QD PO
     Route: 048
     Dates: start: 20081017, end: 20090410
  2. LENALIDOMIDE [Suspect]
     Indication: NEUROPATHY PERIPHERAL
     Dosage: 15 MG QD PO
     Route: 048
     Dates: start: 20081017, end: 20090410
  3. TIMOPTIC-XE [Concomitant]
  4. DOXYCYCLINE MONOHYDRATE [Concomitant]
  5. METROGEL [Concomitant]
  6. LISINOPRIL [Concomitant]
  7. CALCIUM CARBONATE [Concomitant]

REACTIONS (2)
  - COLITIS ISCHAEMIC [None]
  - SYNCOPE [None]
